FAERS Safety Report 8081985-1 (Version None)
Quarter: 2012Q1

REPORT INFORMATION
  Report Type: 
  Country: None (occurrence: None)
  Receive Date: 20120130
  Receipt Date: 20111216
  Transmission Date: 20120608
  Serious: No
  Sender: FDA-Public Use
  Company Number: US-ABBOTT-11P-163-0884231-00

PATIENT
  Sex: Male

DRUGS (3)
  1. DEGARELIX [Suspect]
     Dosage: INTIAL DOSE
     Route: 058
  2. LUPRON [Suspect]
     Indication: PRODUCT USED FOR UNKNOWN INDICATION
  3. DEGARELIX [Suspect]
     Indication: PROSTATE CANCER
     Dosage: MAINTENANCE DOSE, 1 IN 28 DAYS
     Route: 058
     Dates: start: 20111108

REACTIONS (2)
  - BLOOD PRESSURE SYSTOLIC INCREASED [None]
  - BLOOD TESTOSTERONE DECREASED [None]
